FAERS Safety Report 9503325 (Version 1)
Quarter: 2013Q3

REPORT INFORMATION
  Report Type: Spontaneous
  Country: FR (occurrence: FR)
  Receive Date: 20130906
  Receipt Date: 20130906
  Transmission Date: 20140515
  Serious: Yes (Disabling)
  Sender: FDA-Public Use
  Company Number: FR-PFIZER INC-2013253951

PATIENT
  Age: 78 Year
  Sex: Female

DRUGS (11)
  1. LYRICA [Suspect]
     Dosage: 25 MG, 1X/DAY
     Route: 048
     Dates: start: 200807, end: 200812
  2. LYRICA [Suspect]
     Dosage: 50 MG, 1X/DAY
     Route: 048
     Dates: start: 200901, end: 200908
  3. LYRICA [Suspect]
     Dosage: 100 MG, 1X/DAY
     Route: 048
     Dates: start: 200909, end: 201308
  4. XANAX [Suspect]
     Dosage: 0.25 MG, 1X/DAY
     Route: 048
  5. ALDACTAZINE [Suspect]
     Dosage: 0.5 DF, 1X/DAY
     Route: 048
  6. KARDEGIC [Suspect]
     Dosage: 160 MG, 1X/DAY
     Route: 048
  7. ISKEDYL [Suspect]
     Dosage: UNK
     Route: 048
  8. PIASCLEDINE [Suspect]
     Dosage: 300 MG, 1X/DAY
     Route: 048
  9. EZETROL [Suspect]
     Dosage: 10 MG, 1X/DAY
     Route: 048
  10. EFFERALGAN [Suspect]
     Dosage: 4 G DAILY DOSE
     Route: 048
  11. CALTRATE VITAMIN D3 [Concomitant]

REACTIONS (3)
  - Visual acuity reduced [Unknown]
  - Balance disorder [Unknown]
  - Pain in extremity [Unknown]
